FAERS Safety Report 25688805 (Version 1)
Quarter: 2025Q3

REPORT INFORMATION
  Report Type: Spontaneous
  Country: GB (occurrence: GB)
  Receive Date: 20250818
  Receipt Date: 20250818
  Transmission Date: 20251021
  Serious: Yes (Other)
  Sender: TEVA
  Company Number: GB-MHRA-TPP24863390C19224400YC1754640119536

PATIENT
  Age: 52 Year
  Sex: Female
  Weight: 68 kg

DRUGS (5)
  1. NAPROXEN [Suspect]
     Active Substance: NAPROXEN
     Indication: Product used for unknown indication
     Route: 065
     Dates: start: 20250801
  2. BENZALKONIUM CHLORIDE\DIMETHICONE\HYDROCORTISONE\NYSTATIN [Concomitant]
     Active Substance: BENZALKONIUM CHLORIDE\DIMETHICONE\HYDROCORTISONE\NYSTATIN
     Indication: Product used for unknown indication
     Dosage: APPLY 3 TIMES/DAY UNTIL THE LESIONS HAVE HEALED
     Route: 061
     Dates: start: 20250715, end: 20250729
  3. TRANEXAMIC ACID [Concomitant]
     Active Substance: TRANEXAMIC ACID
     Indication: Ill-defined disorder
     Route: 065
     Dates: start: 20250320
  4. DESOGESTREL [Concomitant]
     Active Substance: DESOGESTREL
     Indication: Ill-defined disorder
     Dosage: AT THE SAME TIME EACH DAY (CHECK...
     Route: 065
     Dates: start: 20250320
  5. HUXD3 [Concomitant]
     Indication: Product used for unknown indication
     Dates: start: 20250721

REACTIONS (1)
  - Abdominal distension [Recovered/Resolved]
